FAERS Safety Report 7312435-8 (Version None)
Quarter: 2011Q1

REPORT INFORMATION
  Report Type: 
  Country: None (occurrence: None)
  Receive Date: 20110224
  Receipt Date: 20110214
  Transmission Date: 20110831
  Serious: Yes (Hospitalization)
  Sender: FDA-Public Use
  Company Number: US-SANOFI-AVENTIS-A03200607627

PATIENT
  Age: 66 Year
  Sex: Female
  Weight: 132 kg

DRUGS (8)
  1. LEVOTHYROXINE SODIUM [Concomitant]
  2. CLOPIDOGREL BISULFATE [Suspect]
     Indication: STENT PLACEMENT
     Dosage: UNIT DOSE: 75 MG
     Route: 048
     Dates: start: 20031231, end: 20060105
  3. PRAVACHOL [Concomitant]
  4. PREVACID [Concomitant]
  5. CLOPIDOGREL BISULFATE [Suspect]
     Route: 048
     Dates: start: 20060112, end: 20060117
  6. ASPIRIN [Suspect]
     Route: 048
     Dates: start: 20060101
  7. TOPROL-XL [Concomitant]
  8. ASPIRIN [Suspect]
     Indication: STENT PLACEMENT
     Route: 048
     Dates: start: 20031201, end: 20060101

REACTIONS (18)
  - BARRETT'S OESOPHAGUS [None]
  - ANGINA UNSTABLE [None]
  - ABDOMINAL HERNIA OBSTRUCTIVE [None]
  - LETHARGY [None]
  - HAEMOGLOBIN DECREASED [None]
  - GASTRITIS [None]
  - HAEMATEMESIS [None]
  - COLONIC POLYP [None]
  - MELAENA [None]
  - HYPOTENSION [None]
  - ASTHENIA [None]
  - CORONARY ARTERY DISEASE [None]
  - ACUTE MYOCARDIAL INFARCTION [None]
  - MYOCARDIAL INFARCTION [None]
  - GASTROINTESTINAL HAEMORRHAGE [None]
  - ABDOMINAL PAIN [None]
  - ANASTOMOTIC ULCER [None]
  - HAEMORRHOIDAL HAEMORRHAGE [None]
